FAERS Safety Report 9308321 (Version 2)
Quarter: 2013Q2

REPORT INFORMATION
  Report Type: Not Available
  Country: US (occurrence: US)
  Receive Date: 20130524
  Receipt Date: 20130604
  Transmission Date: 20140414
  Serious: Yes (Other)
  Sender: FDA-Public Use
  Company Number: US-LUNDBECK-DKLU1091108

PATIENT
  Sex: Male

DRUGS (9)
  1. SABRIL (FOR ORAL SOLUTION) [Suspect]
     Indication: INFANTILE SPASMS
     Dates: start: 20130420
  2. SABRIL (FOR ORAL SOLUTION) [Suspect]
  3. SABRIL (FOR ORAL SOLUTION) [Suspect]
  4. GLYCOPYRROLATE [Concomitant]
     Indication: DROOLING
  5. ZONISAMIDE [Concomitant]
     Indication: CONVULSION
  6. LACOSAMIDE [Concomitant]
     Indication: CONVULSION
  7. LEVETIRACETAM [Concomitant]
     Indication: CONVULSION
  8. VALIUM [Concomitant]
     Indication: MUSCLE SPASTICITY
  9. ZANTAC [Concomitant]
     Indication: GASTROOESOPHAGEAL REFLUX DISEASE

REACTIONS (2)
  - Epilepsy [Not Recovered/Not Resolved]
  - Tremor [Not Recovered/Not Resolved]
